FAERS Safety Report 5547804-X (Version None)
Quarter: 2007Q4

REPORT INFORMATION
  Report Type: 
  Country: None (occurrence: None)
  Receive Date: 20071128
  Receipt Date: 20070503
  Transmission Date: 20080405
  Serious: Yes (Other)
  Sender: FDA-Public Use
  Company Number: 2007028243

PATIENT
  Sex: Male

DRUGS (9)
  1. LIPITOR [Suspect]
     Indication: BLOOD CHOLESTEROL INCREASED
     Dosage: 10 MG (10 MG, 1 IN 1 D)
     Dates: start: 20010101
  2. TRICOR [Concomitant]
  3. FOLIC ACID [Concomitant]
  4. ACETYLSALICYLIC ACID (ACETYLSLAICYLIC ACID) [Concomitant]
  5. WARFARIN SODIUM [Concomitant]
  6. GLUCOPHAGE [Concomitant]
  7. COZAAR [Concomitant]
  8. ACIPHEX [Concomitant]
  9. AMARYL [Concomitant]

REACTIONS (2)
  - LOW DENSITY LIPOPROTEIN INCREASED [None]
  - MUSCLE SPASMS [None]
